FAERS Safety Report 4378249-6 (Version None)
Quarter: 2004Q2

REPORT INFORMATION
  Report Type: 
  Country: None (occurrence: None)
  Receive Date: 20040609
  Receipt Date: 20040524
  Transmission Date: 20050107
  Serious: Yes (Other)
  Sender: FDA-Public Use
  Company Number: US_0405103272

PATIENT
  Age: 73 Year
  Sex: Male
  Weight: 82 kg

DRUGS (8)
  1. HUMALOG [Suspect]
  2. INSULIN GLARGINE [Concomitant]
  3. ASPIRIN [Concomitant]
  4. LEVODOPA [Concomitant]
  5. CARBIDOPA [Concomitant]
  6. ENTACAPONE [Concomitant]
  7. MULTIVITAMIN [Concomitant]
  8. SODIUM CHLORIDE INJ [Concomitant]

REACTIONS (2)
  - DIABETIC COMA [None]
  - MEDICATION ERROR [None]
